FAERS Safety Report 17965710 (Version 3)
Quarter: 2021Q3

REPORT INFORMATION
  Report Type: Report from Study
  Country: US (occurrence: US)
  Receive Date: 20200701
  Receipt Date: 20210908
  Transmission Date: 20211014
  Serious: Yes (Other)
  Sender: FDA-Public Use
  Company Number: US-SHIRE-US202021168

PATIENT
  Age: 73 Year
  Sex: Male
  Weight: 96.6 kg

DRUGS (24)
  1. CUVITRU [Suspect]
     Active Substance: HUMAN IMMUNOGLOBULIN G
     Dosage: 12 GRAM, 1/WEEK
     Route: 058
     Dates: start: 20190906
  2. PERFOROMIST [Concomitant]
     Active Substance: FORMOTEROL FUMARATE DIHYDRATE
  3. BUDESONIDE. [Concomitant]
     Active Substance: BUDESONIDE
  4. MUCINEX [Concomitant]
     Active Substance: GUAIFENESIN
  5. FISH OIL [Concomitant]
     Active Substance: FISH OIL
  6. CELEBREX [Concomitant]
     Active Substance: CELECOXIB
  7. EPINEPHRINE. [Concomitant]
     Active Substance: EPINEPHRINE
  8. PREDNISONE. [Concomitant]
     Active Substance: PREDNISONE
  9. VENTOLIN HFA [Concomitant]
     Active Substance: ALBUTEROL SULFATE
  10. BISOPROLOL FUMARATE. [Concomitant]
     Active Substance: BISOPROLOL FUMARATE
  11. FLONASE [Concomitant]
     Active Substance: FLUTICASONE PROPIONATE
  12. CUVITRU [Suspect]
     Active Substance: HUMAN IMMUNOGLOBULIN G
     Indication: IMMUNODEFICIENCY COMMON VARIABLE
     Dosage: 12 GRAM, 1/WEEK
     Route: 058
     Dates: start: 20180906
  13. CYMBALTA [Concomitant]
     Active Substance: DULOXETINE HYDROCHLORIDE
  14. MULTIVITAMINS [Concomitant]
     Active Substance: VITAMINS
  15. ACETAMINOPHEN. [Concomitant]
     Active Substance: ACETAMINOPHEN
  16. AMBIEN [Concomitant]
     Active Substance: ZOLPIDEM TARTRATE
  17. PULMOZYME [Concomitant]
     Active Substance: DORNASE ALFA
  18. ECHINACEA [Concomitant]
     Active Substance: ECHINACEA, UNSPECIFIED
  19. BACTRIM [Concomitant]
     Active Substance: SULFAMETHOXAZOLE\TRIMETHOPRIM
  20. CUVITRU [Suspect]
     Active Substance: HUMAN IMMUNOGLOBULIN G
     Dosage: 12 GRAM, 1/WEEK
     Route: 058
     Dates: start: 20190908
  21. DIPHENHYDRAMINE. [Concomitant]
     Active Substance: DIPHENHYDRAMINE
  22. IMITREX [Concomitant]
     Active Substance: SUMATRIPTAN SUCCINATE
  23. IPRATROPIUM/ALBUTEROL [Concomitant]
     Active Substance: ALBUTEROL\IPRATROPIUM
  24. VITAMIN C [Concomitant]
     Active Substance: ASCORBIC ACID

REACTIONS (4)
  - SARS-CoV-2 test positive [Unknown]
  - Herpes zoster [Unknown]
  - Pneumonia bacterial [Not Recovered/Not Resolved]
  - Sinusitis [Unknown]

NARRATIVE: CASE EVENT DATE: 20200620
